FAERS Safety Report 24619455 (Version 4)
Quarter: 2025Q1

REPORT INFORMATION
  Report Type: Spontaneous
  Country: CA (occurrence: CA)
  Receive Date: 20241114
  Receipt Date: 20250325
  Transmission Date: 20250408
  Serious: Yes (Other)
  Sender: PFIZER
  Company Number: CA-PFIZER INC-202400249295

PATIENT
  Age: 60 Year
  Sex: Male

DRUGS (3)
  1. ABRILADA [Suspect]
     Active Substance: ADALIMUMAB-AFZB
     Indication: Crohn^s disease
     Route: 058
     Dates: start: 20240528
  2. ABRILADA [Suspect]
     Active Substance: ADALIMUMAB-AFZB
     Route: 058
     Dates: start: 20241126
  3. CIPROFLOXACIN [Concomitant]
     Active Substance: CIPROFLOXACIN

REACTIONS (10)
  - Blood bilirubin increased [Not Recovered/Not Resolved]
  - Immunodeficiency [Unknown]
  - Drug ineffective [Unknown]
  - Fatigue [Unknown]
  - Asthenia [Unknown]
  - Anal incontinence [Unknown]
  - Oral herpes [Unknown]
  - Aphthous ulcer [Recovered/Resolved]
  - Nasopharyngitis [Unknown]
  - Anal fissure [Unknown]

NARRATIVE: CASE EVENT DATE: 20240101
